FAERS Safety Report 6818959-1 (Version None)
Quarter: 2010Q3

REPORT INFORMATION
  Report Type: 
  Country: None (occurrence: None)
  Receive Date: 20100707
  Receipt Date: 20100330
  Transmission Date: 20110219
  Serious: Yes (Other)
  Sender: FDA-Public Use
  Company Number: US-ASTRAZENECA-2006UW14775

PATIENT
  Age: 721 Month
  Sex: Female

DRUGS (10)
  1. SEROQUEL [Suspect]
     Indication: DEPRESSION
     Route: 048
     Dates: start: 19991201, end: 20060101
  2. SEROQUEL [Suspect]
     Indication: ANXIETY
     Route: 048
     Dates: start: 19991201, end: 20060101
  3. SEROQUEL [Suspect]
     Route: 048
     Dates: start: 20000110, end: 20060301
  4. SEROQUEL [Suspect]
     Route: 048
     Dates: start: 20000110, end: 20060301
  5. RISPERDAL [Suspect]
     Indication: DEPRESSION
     Dates: start: 19961201, end: 20051201
  6. RISPERDAL [Suspect]
     Indication: ANXIETY
     Dates: start: 19961201, end: 20051201
  7. VIVELLE [Concomitant]
     Dates: start: 19991027
  8. LIPITOR [Concomitant]
     Dates: start: 19991130
  9. BUSPAR [Concomitant]
     Dates: start: 19991205
  10. PROVERA [Concomitant]
     Dates: start: 20000202

REACTIONS (2)
  - DIABETES MELLITUS [None]
  - DIABETIC NEUROPATHY [None]
